FAERS Safety Report 11395271 (Version 3)
Quarter: 2015Q4

REPORT INFORMATION
  Report Type: Spontaneous
  Country: US (occurrence: US)
  Receive Date: 20150819
  Receipt Date: 20151102
  Transmission Date: 20160304
  Serious: Yes (Hospitalization, Other)
  Sender: FDA-Public Use
  Company Number: US-JNJFOC-20150811526

PATIENT
  Age: 73 Year
  Sex: Female
  Weight: 57.61 kg

DRUGS (3)
  1. XARELTO [Suspect]
     Active Substance: RIVAROXABAN
     Indication: CEREBROVASCULAR ACCIDENT PROPHYLAXIS
     Route: 048
     Dates: start: 20150814
  2. XARELTO [Suspect]
     Active Substance: RIVAROXABAN
     Indication: ATRIAL FIBRILLATION
     Route: 048
     Dates: start: 20150814
  3. LISINOPRIL. [Concomitant]
     Active Substance: LISINOPRIL
     Route: 065

REACTIONS (4)
  - Eye haemorrhage [Unknown]
  - Heart rate decreased [Unknown]
  - Eye haemorrhage [Recovered/Resolved]
  - High frequency ablation [Unknown]

NARRATIVE: CASE EVENT DATE: 20150815
